FAERS Safety Report 19183674 (Version 3)
Quarter: 2021Q2

REPORT INFORMATION
  Report Type: Spontaneous
  Country: US (occurrence: US)
  Receive Date: 20210427
  Receipt Date: 20210518
  Transmission Date: 20210717
  Serious: Yes (Other)
  Sender: FDA-Public Use
  Company Number: US-AUROBINDO-AUR-APL-2021-016936

PATIENT
  Age: 8 Year
  Sex: Male

DRUGS (21)
  1. IRINOTECAN [Suspect]
     Active Substance: IRINOTECAN
     Indication: METASTASES TO BONE
  2. CEFIXIME. [Concomitant]
     Active Substance: CEFIXIME
     Indication: PROPHYLAXIS
     Dosage: 4 MILLIGRAM/KILOGRAM, ONCE A DAY
     Route: 065
  3. ECULIZUMAB [Concomitant]
     Active Substance: ECULIZUMAB
     Indication: THROMBOTIC MICROANGIOPATHY
     Dosage: 600 MILLIGRAM
  4. TEMOZOLOMIDE. [Suspect]
     Active Substance: TEMOZOLOMIDE
     Indication: NEUROBLASTOMA RECURRENT
  5. CARBOPLATIN. [Suspect]
     Active Substance: CARBOPLATIN
     Indication: BONE MARROW CONDITIONING REGIMEN
     Dosage: UNK, CYCLICAL
     Route: 065
  6. MELPHALAN. [Suspect]
     Active Substance: MELPHALAN
     Indication: BONE MARROW CONDITIONING REGIMEN
     Dosage: UNK UNK, CYCLICAL
     Route: 065
  7. IRINOTECAN [Suspect]
     Active Substance: IRINOTECAN
     Indication: NEUROBLASTOMA RECURRENT
  8. DINUTUXIMAB [Suspect]
     Active Substance: DINUTUXIMAB
     Indication: BONE MARROW CONDITIONING REGIMEN
     Dosage: UNK
     Route: 065
  9. ETOPOSIDE. [Suspect]
     Active Substance: ETOPOSIDE
     Indication: BONE MARROW CONDITIONING REGIMEN
     Dosage: UNK, CYCLICAL
     Route: 065
  10. GRANULOCYTE COLONY STIMULATING FACTOR [Suspect]
     Active Substance: GRANULOCYTE COLONY-STIMULATING FACTOR NOS
     Indication: METASTASES TO BONE
  11. TEMOZOLOMIDE. [Suspect]
     Active Substance: TEMOZOLOMIDE
     Indication: METASTASES TO BONE
  12. CYCLOPHOSPHAMIDE. [Suspect]
     Active Substance: CYCLOPHOSPHAMIDE
     Indication: BONE MARROW CONDITIONING REGIMEN
     Dosage: UNK UNK, CYCLICAL
     Route: 065
  13. IRINOTECAN [Suspect]
     Active Substance: IRINOTECAN
     Indication: BONE MARROW CONDITIONING REGIMEN
     Dosage: 50 MILLIGRAM/SQ. METER, CYCLICAL
     Route: 065
  14. ISOTRETINOIN. [Concomitant]
     Active Substance: ISOTRETINOIN
     Indication: BONE MARROW CONDITIONING REGIMEN
     Dosage: UNK, 6 CYCLICAL
     Route: 065
  15. DINUTUXIMAB [Suspect]
     Active Substance: DINUTUXIMAB
     Indication: NEUROBLASTOMA RECURRENT
     Dosage: 17.5 MILLIGRAM/SQ. METER
     Route: 065
  16. AMLODIPINE [Suspect]
     Active Substance: AMLODIPINE BESYLATE
     Indication: HYPERTENSION
     Dosage: UNK
     Route: 065
  17. DINUTUXIMAB [Suspect]
     Active Substance: DINUTUXIMAB
     Indication: METASTASES TO BONE
  18. GRANULOCYTE COLONY STIMULATING FACTOR [Suspect]
     Active Substance: GRANULOCYTE COLONY-STIMULATING FACTOR NOS
     Indication: BONE MARROW CONDITIONING REGIMEN
     Dosage: 250 MICROGRAM/SQ. METER PER DOSE
     Route: 065
  19. GRANULOCYTE COLONY STIMULATING FACTOR [Suspect]
     Active Substance: GRANULOCYTE COLONY-STIMULATING FACTOR NOS
     Indication: NEUROBLASTOMA RECURRENT
  20. TEMOZOLOMIDE. [Suspect]
     Active Substance: TEMOZOLOMIDE
     Indication: BONE MARROW CONDITIONING REGIMEN
     Dosage: 100 MILLIGRAM/SQ. METER, CYCLICAL
     Route: 065
  21. THIOTEPA. [Suspect]
     Active Substance: THIOTEPA
     Indication: BONE MARROW CONDITIONING REGIMEN
     Dosage: UNK, CYCLICAL
     Route: 065

REACTIONS (9)
  - Thrombotic microangiopathy [Unknown]
  - Thrombocytopenia [Unknown]
  - Anaemia [Unknown]
  - Blood lactate dehydrogenase increased [Unknown]
  - Pyrexia [Unknown]
  - Drug ineffective [Unknown]
  - End stage renal disease [Unknown]
  - Proteinuria [Unknown]
  - Clostridium difficile colitis [Unknown]
